FAERS Safety Report 10051475 (Version 1)
Quarter: 2014Q2

REPORT INFORMATION
  Report Type: Report from Study
  Country: GB (occurrence: GB)
  Receive Date: 20140401
  Receipt Date: 20140401
  Transmission Date: 20141212
  Serious: Yes (Death)
  Sender: FDA-Public Use
  Company Number: GB-MYLANLABS-2014S1006448

PATIENT
  Age: 72 Year
  Sex: Male

DRUGS (9)
  1. AZATHIOPRINE [Suspect]
  2. ENALAPRIL [Suspect]
     Indication: CARDIAC FAILURE CHRONIC
     Dosage: DOUBLE BLIND
     Dates: start: 20110126, end: 20120122
  3. BISOPROLOL [Concomitant]
     Indication: CARDIAC FAILURE
     Dosage: 2.5 MG, QD
     Dates: start: 20100908, end: 20120122
  4. BUMETANIDE [Concomitant]
     Indication: CARDIAC FAILURE
     Dosage: 0.5 MG, QD
     Dates: start: 20100910, end: 20120122
  5. CLOPIDOGREL [Concomitant]
     Indication: PROPHYLAXIS
     Dosage: 75 MG, QD
     Dates: start: 20100908, end: 20120122
  6. EPLERENONE [Concomitant]
     Indication: CARDIAC FAILURE
     Dosage: 25 MG, BID
     Dates: start: 20110707, end: 20120122
  7. METHOTREXATE [Concomitant]
  8. SIMVASTATIN [Concomitant]
     Indication: PROPHYLAXIS
     Dosage: 40 MG, QD
     Dates: start: 20100908, end: 20120122
  9. TAMSULOSIN [Concomitant]
     Indication: POLLAKIURIA
     Dosage: 400 MG, QD
     Dates: start: 20041110, end: 20120122

REACTIONS (2)
  - Myocardial ischaemia [Fatal]
  - Concomitant disease progression [Fatal]
